FAERS Safety Report 5326041-8 (Version None)
Quarter: 2007Q2

REPORT INFORMATION
  Report Type: 
  Country: None (occurrence: None)
  Receive Date: 20070516
  Receipt Date: 20070504
  Transmission Date: 20071010
  Serious: Yes (Hospitalization)
  Sender: FDA-Public Use
  Company Number: CH-JNJFOC-20070501857

PATIENT
  Age: 82 Year
  Sex: Female
  Weight: 73 kg

DRUGS (10)
  1. REMINYL [Suspect]
     Indication: DEMENTIA ALZHEIMER'S TYPE
     Route: 048
  2. LAXOBERON [Suspect]
     Route: 048
  3. LAXOBERON [Suspect]
     Indication: CONSTIPATION
     Route: 048
  4. TEMESTA [Concomitant]
  5. TEMESTA [Concomitant]
     Indication: ANXIETY DISORDER
  6. NEXIUM [Concomitant]
     Route: 048
  7. NEXIUM [Concomitant]
     Indication: OESOPHAGITIS
     Route: 048
  8. VITARUBIN [Concomitant]
     Indication: VITAMIN B12 DEFICIENCY
     Route: 058
  9. DAFALGAN [Concomitant]
  10. CIPRALEX [Concomitant]
     Indication: DEPRESSION
     Route: 048

REACTIONS (1)
  - URTICARIA [None]
